FAERS Safety Report 12109389 (Version 1)
Quarter: 2016Q1

REPORT INFORMATION
  Report Type: Spontaneous
  Country: US (occurrence: None)
  Receive Date: 20160223
  Receipt Date: 20160223
  Transmission Date: 20160526
  Serious: No
  Sender: FDA-Public Use
  Company Number: None

PATIENT
  Age: 37 Year
  Sex: Female

DRUGS (2)
  1. LEXAPRO [Suspect]
     Active Substance: ESCITALOPRAM OXALATE
     Indication: DEPRESSION
     Dosage: 1 PILL A DAY, ONCE DAILY, TAKEN BY MOUTH
     Route: 048
     Dates: start: 20150817, end: 20160217
  2. LEXAPRO [Suspect]
     Active Substance: ESCITALOPRAM OXALATE
     Indication: ANXIETY
     Dosage: 1 PILL A DAY, ONCE DAILY, TAKEN BY MOUTH
     Route: 048
     Dates: start: 20150817, end: 20160217

REACTIONS (11)
  - Nausea [None]
  - Feeling abnormal [None]
  - Anhedonia [None]
  - Impaired work ability [None]
  - Dizziness [None]
  - Fatigue [None]
  - Headache [None]
  - Sleep disorder [None]
  - Weight increased [None]
  - Libido decreased [None]
  - Night sweats [None]

NARRATIVE: CASE EVENT DATE: 20160221
